FAERS Safety Report 9281020 (Version 2)
Quarter: 2013Q3

REPORT INFORMATION
  Report Type: Spontaneous
  Country: US (occurrence: US)
  Receive Date: 20130509
  Receipt Date: 20130722
  Transmission Date: 20140515
  Serious: Yes (Death)
  Sender: FDA-Public Use
  Company Number: US-GLAXOSMITHKLINE-A1022831A

PATIENT
  Age: 62 Year
  Sex: Male

DRUGS (8)
  1. VOTRIENT [Suspect]
     Indication: MALIGNANT URINARY TRACT NEOPLASM
     Dosage: 800MG PER DAY
     Route: 048
     Dates: start: 20130117, end: 20130207
  2. LIPITOR [Concomitant]
  3. ATIVAN [Concomitant]
  4. LOTREL [Concomitant]
  5. FLOMAX [Concomitant]
  6. OXYCODONE [Concomitant]
  7. PROTONIX [Concomitant]
  8. CARAFATE [Concomitant]

REACTIONS (1)
  - Metastatic renal cell carcinoma [Fatal]
